FAERS Safety Report 7968166-4 (Version None)
Quarter: 2011Q4

REPORT INFORMATION
  Report Type: 
  Country: None (occurrence: None)
  Receive Date: 20111207
  Receipt Date: 20111130
  Transmission Date: 20120403
  Serious: Yes (Life-Threatening, Hospitalization)
  Sender: FDA-Public Use
  Company Number: AUR-APL-2011-06031

PATIENT
  Age: 73 Year
  Sex: Female

DRUGS (4)
  1. ALDACTONE [Suspect]
     Indication: PRODUCT USED FOR UNKNOWN INDICATION
     Dosage: 25 MG, 1 D, ORAL
     Route: 048
     Dates: start: 20100101, end: 20100908
  2. ENALAPRIL MALEATE [Suspect]
     Indication: PRODUCT USED FOR UNKNOWN INDICATION
     Dosage: ORAL
     Route: 048
     Dates: start: 20110501, end: 20110908
  3. IBUPROFEN [Suspect]
     Indication: PRODUCT USED FOR UNKNOWN INDICATION
     Dosage: ORAL
     Route: 048
     Dates: start: 20110801, end: 20110801
  4. METFORMIN HCL [Suspect]
     Indication: DIABETES MELLITUS
     Dosage: 850 MG, 1 D, ORAL
     Route: 048
     Dates: start: 20110401, end: 20110908

REACTIONS (7)
  - HAEMODIALYSIS [None]
  - DRUG INTERACTION [None]
  - RENAL FAILURE ACUTE [None]
  - BLOOD SODIUM DECREASED [None]
  - HYPERKALAEMIA [None]
  - LACTIC ACIDOSIS [None]
  - GENERAL PHYSICAL HEALTH DETERIORATION [None]
